FAERS Safety Report 12104373 (Version 9)
Quarter: 2019Q3

REPORT INFORMATION
  Report Type: Report from Study
  Country: DE (occurrence: DE)
  Receive Date: 20160223
  Receipt Date: 20190920
  Transmission Date: 20191004
  Serious: Yes (Other)
  Sender: FDA-Public Use
  Company Number: DE-ROCHE-1714389

PATIENT
  Age: 81 Year
  Sex: Female
  Weight: 69 kg

DRUGS (10)
  1. RANIBIZUMAB. [Suspect]
     Active Substance: RANIBIZUMAB
     Dosage: 0.5 MG LEFT EYE?0.5 MG RIGHT EYE
     Route: 031
     Dates: start: 20161013
  2. RANIBIZUMAB. [Suspect]
     Active Substance: RANIBIZUMAB
     Dosage: 0.5 MG LEFT EYE?0.5 MG RIGHT EYE
     Route: 031
     Dates: start: 20161118, end: 20161118
  3. RANIBIZUMAB. [Suspect]
     Active Substance: RANIBIZUMAB
     Dosage: LEFT EYE?0.5 MG IN RIGHT EYE AS TREATMENT
     Route: 031
     Dates: start: 20160609, end: 20160609
  4. RANIBIZUMAB. [Suspect]
     Active Substance: RANIBIZUMAB
     Dosage: 0.5 MG LEFT EYE?0.5 MG RIGHT EYE AS TREATMENT
     Route: 031
     Dates: start: 20160901
  5. INFLANEFRAN [Concomitant]
     Active Substance: PREDNISOLONE ACETATE
     Indication: PRODUCT USED FOR UNKNOWN INDICATION
     Dosage: UNK
     Route: 065
     Dates: start: 20160609, end: 20160714
  6. RANIBIZUMAB. [Suspect]
     Active Substance: RANIBIZUMAB
     Dosage: LEFT EYE
     Route: 031
     Dates: start: 20160120, end: 20160120
  7. RANIBIZUMAB. [Suspect]
     Active Substance: RANIBIZUMAB
     Indication: NEOVASCULAR AGE-RELATED MACULAR DEGENERATION
     Dosage: LEFT EYE
     Route: 031
     Dates: start: 20151109
  8. RANIBIZUMAB. [Suspect]
     Active Substance: RANIBIZUMAB
     Dosage: LEFT EYE
     Route: 031
     Dates: start: 20151214, end: 20151214
  9. RANIBIZUMAB. [Suspect]
     Active Substance: RANIBIZUMAB
     Dosage: LEFT EYE?0.5 MG IN RIGHT EYE AS TREATMENT
     Route: 031
     Dates: start: 20160428
  10. RANIBIZUMAB. [Suspect]
     Active Substance: RANIBIZUMAB
     Dosage: 0.5 MG LEFT EYE?0.5 MG RIGHT EYE AS TREATMENT
     Route: 031
     Dates: start: 20171016

REACTIONS (10)
  - Cystoid macular oedema [Not Recovered/Not Resolved]
  - Metamorphopsia [Not Recovered/Not Resolved]
  - Detachment of retinal pigment epithelium [Unknown]
  - Cataract [Not Recovered/Not Resolved]
  - Subretinal fluid [Recovering/Resolving]
  - Retinal drusen [Unknown]
  - Dry age-related macular degeneration [Unknown]
  - Neovascular age-related macular degeneration [Unknown]
  - Concomitant disease aggravated [Unknown]
  - Posterior capsule opacification [Recovered/Resolved]

NARRATIVE: CASE EVENT DATE: 20151217
